FAERS Safety Report 8137474-9 (Version None)
Quarter: 2012Q1

REPORT INFORMATION
  Report Type: 
  Country: None (occurrence: None)
  Receive Date: 20120103
  Receipt Date: 20110909
  Transmission Date: 20120608
  Serious: No
  Sender: FDA-Public Use
  Company Number: AE-2011-001435

PATIENT
  Age: 55 Year
  Sex: Female
  Weight: 63.5036 kg

DRUGS (7)
  1. METFORMIN HCL [Concomitant]
  2. RIBAVIRIN [Concomitant]
  3. PROZAC [Concomitant]
  4. SYNTHROID [Concomitant]
  5. INCIVEK [Suspect]
     Dosage: 2250 MG (750 MG, 3 IN 1 D), ORAL
     Route: 048
     Dates: start: 20110903
  6. PEG-INTRON [Concomitant]
  7. CYTOMEL [Concomitant]

REACTIONS (3)
  - INJECTION SITE REACTION [None]
  - NAUSEA [None]
  - CRYOGLOBULINAEMIA [None]
